FAERS Safety Report 23390239 (Version 1)
Quarter: 2024Q1

REPORT INFORMATION
  Report Type: Spontaneous
  Country: GB (occurrence: GB)
  Receive Date: 20240111
  Receipt Date: 20240111
  Transmission Date: 20240410
  Serious: Yes (Other)
  Sender: FDA-Public Use
  Company Number: None

PATIENT
  Age: 88 Year
  Sex: Female
  Weight: 54.43 kg

DRUGS (15)
  1. FEXOFENADINE [Suspect]
     Active Substance: FEXOFENADINE HYDROCHLORIDE
     Indication: Pruritus
     Dates: start: 20231219, end: 20231228
  2. CETRABEN EMOLLIENT CREAM [Concomitant]
     Indication: Product used for unknown indication
     Dosage: APPLY WHEN REQUIRED AND AS DIRECTED
     Dates: start: 20231212
  3. COMIRNATY OMICRON XBB.1.5 [Concomitant]
     Indication: Product used for unknown indication
     Route: 030
     Dates: start: 20231014
  4. CARBOCYSTEINE [Concomitant]
     Active Substance: CARBOCYSTEINE
     Indication: Product used for unknown indication
     Dates: start: 20231117
  5. DOXYCYCLINE [Concomitant]
     Active Substance: DOXYCYCLINE
     Indication: Product used for unknown indication
     Dosage: TWO TO BE TAKEN ON THE FIRST DAY THEN ONE TO BE TAKEN EACH DAY
     Dates: start: 20231227
  6. FUROSEMIDE [Concomitant]
     Active Substance: FUROSEMIDE
     Indication: Product used for unknown indication
     Dosage: AT MIDDAY
     Dates: start: 20231117
  7. HYDROXOCOBALAMIN [Concomitant]
     Active Substance: HYDROXOCOBALAMIN
     Indication: Product used for unknown indication
     Dosage: 1MG/1ML EVERY 3 MONTHS
     Dates: start: 20231012, end: 20231124
  8. LORATADINE [Concomitant]
     Active Substance: LORATADINE
     Indication: Product used for unknown indication
     Dates: start: 20231023, end: 20231207
  9. POLYETHYLENE GLYCOLS [Concomitant]
     Active Substance: POLYETHYLENE GLYCOLS
     Indication: Product used for unknown indication
     Dosage: DISSOLVE ONE SACHET IN 125ML OF WATER  EACH DAY
     Dates: start: 20231208
  10. NYSTATIN [Concomitant]
     Active Substance: NYSTATIN
     Indication: Product used for unknown indication
     Dosage: 1ML TO BE DROPPED INTO THE MOUTH FOUR TIMES A DAY
     Dates: start: 20231009, end: 20231121
  11. PRAMIPEXOLE [Concomitant]
     Active Substance: PRAMIPEXOLE\PRAMIPEXOLE DIHYDROCHLORIDE
     Indication: Product used for unknown indication
     Dosage: AT NIGHT AS DIRECTED
     Dates: start: 20231023, end: 20231207
  12. PREDNISOLONE [Concomitant]
     Active Substance: PREDNISOLONE
     Indication: Product used for unknown indication
     Dosage: 6 DAILY 1WK (RESCUE PACK)
     Dates: start: 20231227
  13. ALBUTEROL [Concomitant]
     Active Substance: ALBUTEROL
     Indication: Product used for unknown indication
     Dosage: WHEN REQUIRED
     Route: 055
     Dates: start: 20231009, end: 20231107
  14. SODIUM CHLORIDE [Concomitant]
     Active Substance: SODIUM CHLORIDE
     Indication: Product used for unknown indication
     Dosage: AS DIRECTED
     Dates: start: 20231009, end: 20231121
  15. WARFARIN [Concomitant]
     Active Substance: WARFARIN
     Indication: Anticoagulant therapy
     Dosage: TAKE AS PRESCRIBED IN ANTICOAGULANT TREATMENT BOOK
     Dates: start: 20231122

REACTIONS (1)
  - Hallucination, visual [Recovered/Resolved]
